FAERS Safety Report 13647252 (Version 11)
Quarter: 2021Q4

REPORT INFORMATION
  Report Type: Report from Study
  Country: JP (occurrence: JP)
  Receive Date: 20170613
  Receipt Date: 20211224
  Transmission Date: 20220303
  Serious: Yes (Hospitalization, Other)
  Sender: FDA-Public Use
  Company Number: JP-VIIVHC-JP2017JPN088088AA

PATIENT
  Age: 31 Year
  Sex: Male

DRUGS (23)
  1. DOLUTEGRAVIR [Suspect]
     Active Substance: DOLUTEGRAVIR
     Indication: HIV infection
     Dosage: 50 MG, 1D
     Route: 048
     Dates: start: 20160125
  2. TRUVADA [Suspect]
     Active Substance: EMTRICITABINE\TENOFOVIR DISOPROXIL FUMARATE
     Indication: HIV infection
     Dosage: 1 DF, 1D
     Route: 048
     Dates: start: 2006, end: 20170526
  3. DESCOVY [Suspect]
     Active Substance: EMTRICITABINE\TENOFOVIR ALAFENAMIDE FUMARATE
     Indication: HIV infection
     Dosage: 1 DF, 1D
     Route: 048
     Dates: start: 20170526
  4. ISENTRESS [Concomitant]
     Active Substance: RALTEGRAVIR POTASSIUM
     Indication: HIV infection
     Dosage: 800 MG, 1D
     Dates: start: 20110513, end: 20160124
  5. LIPIDIL [Concomitant]
     Active Substance: FENOFIBRATE
     Indication: Dyslipidaemia
     Dosage: 80 MG, QD
     Dates: start: 20170401
  6. LANSOPRAZOLE [Concomitant]
     Active Substance: LANSOPRAZOLE
     Indication: Gastrooesophageal reflux disease
     Dosage: 15 MG, QD
     Dates: end: 20180707
  7. PROCATEROL HYDROCHLORIDE [Concomitant]
     Active Substance: PROCATEROL HYDROCHLORIDE
     Indication: Asthma
     Dosage: 10 ?G, BID
     Dates: start: 20170401
  8. FLUTICASONE FUROATE\VILANTEROL TRIFENATATE [Concomitant]
     Active Substance: FLUTICASONE FUROATE\VILANTEROL TRIFENATATE
     Indication: Asthma
     Dosage: 200 ?G, QD
     Dates: start: 20170401
  9. SINGULAIR [Concomitant]
     Active Substance: MONTELUKAST SODIUM
     Indication: Asthma
     Dosage: 10 MG, QD
     Dates: start: 20170401
  10. LITHIUM CARBONATE [Concomitant]
     Active Substance: LITHIUM CARBONATE
     Indication: Schizophrenia
     Dosage: 800 MG, BID
  11. BLONANSERIN [Concomitant]
     Active Substance: BLONANSERIN
     Indication: Schizophrenia
     Dosage: 6 MG, BID
  12. PAXIL [Concomitant]
     Active Substance: PAROXETINE HYDROCHLORIDE
     Indication: Schizophrenia
     Dosage: 20 MG, BID
  13. ARTANE [Concomitant]
     Active Substance: TRIHEXYPHENIDYL HYDROCHLORIDE
     Indication: Schizophrenia
     Dosage: 4 MG, TID
  14. SOLANAX [Concomitant]
     Active Substance: ALPRAZOLAM
     Indication: Schizophrenia
     Dosage: 0.4 MG, TID
  15. EPERISONE HYDROCHLORIDE [Concomitant]
     Active Substance: EPERISONE HYDROCHLORIDE
     Indication: Schizophrenia
     Dosage: 50 MG, TID
  16. LODOPIN (JAPAN) [Concomitant]
     Indication: Schizophrenia
     Dosage: 200 MG, QD
  17. DORAL [Concomitant]
     Active Substance: QUAZEPAM
     Indication: Schizophrenia
     Dosage: 20 MG, QD
  18. CYMBALTA [Concomitant]
     Active Substance: DULOXETINE HYDROCHLORIDE
     Indication: Schizophrenia
     Dosage: 60 MG, QD
  19. AMOBARBITAL SODIUM [Concomitant]
     Active Substance: AMOBARBITAL SODIUM
     Indication: Schizophrenia
     Dosage: 0.3 G, QD
  20. BROMISOVAL [Concomitant]
     Active Substance: BROMISOVAL
     Indication: Schizophrenia
     Dosage: 0.5 G, QD
  21. MEXAZOLAM [Concomitant]
     Active Substance: MEXAZOLAM
     Indication: Schizophrenia
     Dosage: 1 MG, TID
  22. REBAMIPIDE TABLETS [Concomitant]
     Indication: Prophylaxis
     Dosage: UNK
     Dates: start: 20180119, end: 20191216
  23. RABEPRAZOLE SODIUM [Concomitant]
     Active Substance: RABEPRAZOLE SODIUM
     Indication: Gastrooesophageal reflux disease
     Dosage: UNK
     Dates: start: 20180707, end: 20191216

REACTIONS (14)
  - Diabetes mellitus [Not Recovered/Not Resolved]
  - Renal impairment [Not Recovered/Not Resolved]
  - Hepatic function abnormal [Not Recovered/Not Resolved]
  - Insomnia [Not Recovered/Not Resolved]
  - Gastroenteritis [Recovering/Resolving]
  - Arthralgia [Not Recovered/Not Resolved]
  - Enuresis [Not Recovered/Not Resolved]
  - Schizophrenia [Recovered/Resolved]
  - Diabetes mellitus [Recovered/Resolved]
  - Electrocardiogram abnormal [Recovered/Resolved]
  - Pruritus genital [Not Recovered/Not Resolved]
  - Bronchitis [Recovering/Resolving]
  - Stomatitis [Not Recovered/Not Resolved]
  - Abnormal sensation in eye [Not Recovered/Not Resolved]

NARRATIVE: CASE EVENT DATE: 20161216
